FAERS Safety Report 7368253-8 (Version None)
Quarter: 2011Q1

REPORT INFORMATION
  Report Type: 
  Country: None (occurrence: None)
  Receive Date: 20110323
  Receipt Date: 20110321
  Transmission Date: 20110831
  Serious: No
  Sender: FDA-Public Use
  Company Number: US-PFIZER INC-2011062120

PATIENT
  Sex: Female
  Weight: 54.422 kg

DRUGS (1)
  1. XALATAN [Suspect]
     Indication: GLAUCOMA
     Dosage: 1 GTT, 1X/DAY IN EACH EYE
     Route: 047

REACTIONS (4)
  - EYE PRURITUS [None]
  - OCULAR HYPERAEMIA [None]
  - HEADACHE [None]
  - EYE IRRITATION [None]
